FAERS Safety Report 10257589 (Version 1)
Quarter: 2014Q2

REPORT INFORMATION
  Report Type: Spontaneous
  Country: GR (occurrence: GR)
  Receive Date: 20140625
  Receipt Date: 20140625
  Transmission Date: 20141212
  Serious: Yes (Hospitalization, Other)
  Sender: FDA-Public Use
  Company Number: PHHY2014GR076812

PATIENT
  Age: 7 Year
  Sex: Male

DRUGS (4)
  1. ILARIS [Suspect]
     Indication: RHEUMATOID ARTHRITIS
     Dosage: UNK
     Dates: start: 20131002
  2. CORTIZONE [Concomitant]
     Dosage: UNK
  3. CORTIZONE [Concomitant]
     Dosage: UNK
  4. PREZOLON [Concomitant]
     Dosage: 2.5 TABS ONCE A DAY (DOSE 12.5 MG)

REACTIONS (4)
  - Pyrexia [Recovered/Resolved]
  - Rheumatoid arthritis [Not Recovered/Not Resolved]
  - Transaminases increased [Not Recovered/Not Resolved]
  - Therapeutic response decreased [Unknown]
